FAERS Safety Report 4926147-9 (Version None)
Quarter: 2006Q1

REPORT INFORMATION
  Report Type: 
  Country: None (occurrence: None)
  Receive Date: 20060228
  Receipt Date: 20050826
  Transmission Date: 20060701
  Serious: No
  Sender: FDA-Public Use
  Company Number: US-GLAXOSMITHKLINE-A0571997A

PATIENT
  Age: 31 Year
  Sex: Female

DRUGS (4)
  1. LAMICTAL [Suspect]
     Indication: BIPOLAR DISORDER
     Dosage: 150MG IN THE MORNING
     Route: 048
     Dates: start: 20040101
  2. ORTHO TRI-CYCLEN [Concomitant]
  3. LEXAPRO [Concomitant]
  4. MULTIVITAMIN [Concomitant]

REACTIONS (2)
  - RASH [None]
  - RASH ERYTHEMATOUS [None]
